FAERS Safety Report 8508352-8 (Version None)
Quarter: 2012Q3

REPORT INFORMATION
  Report Type: 
  Country: None (occurrence: None)
  Receive Date: 20120713
  Receipt Date: 20120706
  Transmission Date: 20120928
  Serious: Yes (Other)
  Sender: FDA-Public Use
  Company Number: PHHY2012JP053062

PATIENT
  Age: 64 Year
  Sex: Female

DRUGS (4)
  1. SIMVASTATIN [Concomitant]
     Dosage: 15 MG, UNK
     Route: 048
  2. TEGRETOL [Suspect]
     Dosage: 600 MG, DAILY
  3. TEGRETOL [Suspect]
     Indication: TRIGEMINAL NEURALGIA
     Dosage: 600 MG, DAILY
     Route: 048
     Dates: start: 19930101, end: 20120618
  4. TOFRANIL [Concomitant]
     Dosage: 75 MG, UNK
     Route: 048

REACTIONS (1)
  - CONVULSION [None]
